FAERS Safety Report 21082420 (Version 10)
Quarter: 2023Q4

REPORT INFORMATION
  Report Type: Report from Study
  Country: US (occurrence: US)
  Receive Date: 20220714
  Receipt Date: 20231109
  Transmission Date: 20240110
  Serious: Yes (Other)
  Sender: FDA-Public Use
  Company Number: US-PFIZER INC-PV202200006992

PATIENT
  Age: 33 Year
  Sex: Female
  Weight: 68.93 kg

DRUGS (19)
  1. SILDENAFIL [Suspect]
     Active Substance: SILDENAFIL
     Indication: Pulmonary hypertension
     Dosage: 80 MILLIGRAM, TID
     Route: 048
     Dates: start: 202008
  2. AMBRISENTAN [Suspect]
     Active Substance: AMBRISENTAN
     Indication: Pulmonary arterial hypertension
     Dosage: 10 MILLIGRAM, QD
     Route: 048
     Dates: start: 20171104
  3. AMBRISENTAN [Suspect]
     Active Substance: AMBRISENTAN
     Dosage: 10 MILLIGRAM, QD, (DAILY)
     Route: 065
     Dates: start: 201805
  4. AMBRISENTAN [Suspect]
     Active Substance: AMBRISENTAN
     Dosage: 10 MILLIGRAM, QD
     Route: 048
     Dates: start: 202012
  5. TYVASO [Suspect]
     Active Substance: TREPROSTINIL
     Indication: Pulmonary hypertension
     Dosage: 108 MICROGRAM, QID
     Route: 065
     Dates: start: 201704
  6. TYVASO [Suspect]
     Active Substance: TREPROSTINIL
     Dosage: 18 MICROGRAM, QID
     Route: 065
     Dates: start: 202111, end: 2022
  7. TREPROSTINIL [Suspect]
     Active Substance: TREPROSTINIL
     Indication: Pulmonary hypertension
     Dosage: 12.1 MILLIGRAM, (12.1MG, Q1 MINUTE) (START DATE: 02-JUL-2022)
     Route: 065
  8. TREPROSTINIL [Suspect]
     Active Substance: TREPROSTINIL
     Dosage: 18.7 MILLIGRAM, (18.7MG, Q1 MINUTE) (START DATE:01-JUL-2022)
     Route: 065
  9. TREPROSTINIL [Suspect]
     Active Substance: TREPROSTINIL
     Dosage: UNK
     Route: 065
  10. TREPROSTINIL [Suspect]
     Active Substance: TREPROSTINIL
     Dosage: 94.7 NANOGRAM (START DATE:??-JUN-2022)
     Route: 065
  11. MIDODRINE HYDROCHLORIDE [Concomitant]
     Active Substance: MIDODRINE HYDROCHLORIDE
     Dosage: UNK
     Route: 065
  12. PANTOPRAZOLE SODIUM [Concomitant]
     Active Substance: PANTOPRAZOLE SODIUM
     Dosage: UNK
     Route: 065
  13. TYLENOL EXTRA STRENGTH [Concomitant]
     Active Substance: ACETAMINOPHEN
     Dosage: UNK
     Route: 065
  14. CYANOCOBALAMIN\FOLIC ACID [Concomitant]
     Active Substance: CYANOCOBALAMIN\FOLIC ACID
     Dosage: UNK
     Route: 065
  15. LOPERAMIDE HYDROCHLORIDE [Concomitant]
     Active Substance: LOPERAMIDE HYDROCHLORIDE
     Dosage: UNK
     Route: 065
  16. SPIRONOLACTONE [Concomitant]
     Active Substance: SPIRONOLACTONE
     Dosage: UNK
     Route: 065
  17. FUROSEMIDE [Concomitant]
     Active Substance: FUROSEMIDE
     Dosage: UNK
     Route: 065
  18. ONDANSETRON [Concomitant]
     Active Substance: ONDANSETRON
     Dosage: UNK
     Route: 065
  19. LORYNA [Concomitant]
     Active Substance: DROSPIRENONE\ETHINYL ESTRADIOL
     Dosage: UNK
     Route: 065

REACTIONS (19)
  - Condition aggravated [Not Recovered/Not Resolved]
  - Catheterisation cardiac [Recovered/Resolved]
  - Headache [Unknown]
  - Dizziness [Unknown]
  - Drug ineffective [Not Recovered/Not Resolved]
  - Burning sensation [Recovering/Resolving]
  - Pruritus [Recovering/Resolving]
  - Diarrhoea [Not Recovered/Not Resolved]
  - Nausea [Unknown]
  - Cyanosis [Unknown]
  - Pain in jaw [Not Recovered/Not Resolved]
  - Administration site pain [Not Recovered/Not Resolved]
  - Dyspnoea [Unknown]
  - Infusion site pruritus [Unknown]
  - Skin irritation [Unknown]
  - Flushing [Not Recovered/Not Resolved]
  - Infusion site swelling [Not Recovered/Not Resolved]
  - Infusion site infection [Not Recovered/Not Resolved]
  - Off label use [Unknown]

NARRATIVE: CASE EVENT DATE: 20220101
